FAERS Safety Report 6490493 (Version 5)
Quarter: 2019Q2

REPORT INFORMATION
  Report Type: Spontaneous
  Country: FR (occurrence: FR)
  Receive Date: 20071211
  Receipt Date: 20190401
  Transmission Date: 20190711
  Serious: Yes (Other)
  Sender: FDA-Public Use
  Company Number: FR-ELI_LILLY_AND_COMPANY-FR200712001189

PATIENT
  Age: 62 Year
  Sex: Male

DRUGS (14)
  1. RISPERDAL [Concomitant]
     Active Substance: RISPERIDONE
     Indication: SCHIZOPHRENIA
     Dosage: 8 MG, DAILY (1/D)
     Route: 048
  2. ZYPREXA [Suspect]
     Active Substance: OLANZAPINE
     Dosage: 2.5 MG, DAILY (1/D)
     Route: 048
  3. FELODIPINE;METOPROLOL [Concomitant]
     Indication: HYPERTENSION
  4. ZYPREXA [Suspect]
     Active Substance: OLANZAPINE
     Indication: SCHIZOPHRENIA
     Dosage: 10 MG, DAILY (1/D)
     Route: 048
  5. ENALAPRIL;HYDROCHLOROTHIAZIDE [Concomitant]
     Indication: HYPERTENSION
  6. ZYPREXA [Suspect]
     Active Substance: OLANZAPINE
     Dosage: 5 MG, DAILY (1/D)
     Route: 048
  7. MAG 2 [MAGNESIUM CARBONATE] [Concomitant]
     Active Substance: MAGNESIUM CARBONATE
     Indication: SCHIZOPHRENIA
     Dosage: UNK, UNKNOWN
     Route: 048
  8. ZOPICLONE [Concomitant]
     Active Substance: ZOPICLONE
     Indication: INSOMNIA
  9. DEPAKOTE [Concomitant]
     Active Substance: DIVALPROEX SODIUM
     Indication: SCHIZOPHRENIA
     Dosage: 500 MG, DAILY (1/D)
     Route: 048
  10. NORSET [Concomitant]
     Active Substance: MIRTAZAPINE
     Indication: SCHIZOPHRENIA
     Dosage: 30 MG, DAILY (1/D)
     Route: 048
  11. PILOCARPINE. [Concomitant]
     Active Substance: PILOCARPINE
     Indication: DRY MOUTH
  12. SPIRONOLACTONE. [Concomitant]
     Active Substance: SPIRONOLACTONE
     Indication: HYPERTENSION
  13. NORSET [Concomitant]
     Active Substance: MIRTAZAPINE
     Dosage: 15 MG, DAILY (1/D)
     Route: 048
  14. SEROPLEX [Concomitant]
     Active Substance: ESCITALOPRAM OXALATE
     Indication: SCHIZOPHRENIA
     Dosage: 20 MG, DAILY (1/D)
     Route: 048

REACTIONS (16)
  - Asthenia [Recovered/Resolved]
  - Suicidal ideation [Recovered/Resolved]
  - Somnolence [Recovered/Resolved]
  - Polydipsia [Unknown]
  - Diabetes mellitus [Unknown]
  - Delayed sleep phase [Unknown]
  - Somnolence [Unknown]
  - Narcolepsy [Recovered/Resolved]
  - Depression [Recovered/Resolved]
  - Polyuria [Unknown]
  - Dry eye [Unknown]
  - Dry mouth [Unknown]
  - Poor quality sleep [Unknown]
  - Hypertension [Unknown]
  - Slow response to stimuli [Recovered/Resolved]
  - Renal failure [Unknown]

NARRATIVE: CASE EVENT DATE: 20040324
